FAERS Safety Report 20026183 (Version 1)
Quarter: 2021Q4

REPORT INFORMATION
  Report Type: Spontaneous
  Country: US (occurrence: US)
  Receive Date: 20211102
  Receipt Date: 20211102
  Transmission Date: 20220303
  Serious: No
  Sender: FDA-Public Use
  Company Number: US-SANOFI-00832706

PATIENT
  Age: 79 Year
  Sex: Female

DRUGS (1)
  1. ALLEGRA ALLERGY [Suspect]
     Active Substance: FEXOFENADINE HYDROCHLORIDE
     Indication: Rash
     Dosage: 30 MG
     Route: 065

REACTIONS (3)
  - Dry eye [Unknown]
  - Dry skin [Unknown]
  - Wrong technique in product usage process [Unknown]
